FAERS Safety Report 9653353 (Version 1)
Quarter: 2013Q4

REPORT INFORMATION
  Report Type: Spontaneous
  Country: US (occurrence: None)
  Receive Date: 20131028
  Receipt Date: 20131028
  Transmission Date: 20140711
  Serious: Yes (Life-Threatening, Hospitalization)
  Sender: FDA-Public Use
  Company Number: None

PATIENT
  Age: 34 Year
  Sex: Male
  Weight: 88.45 kg

DRUGS (1)
  1. PRIALT [Suspect]
     Indication: BACK DISORDER
     Dosage: INTATHECAL ONCE DAILY INJECTED INTO SPINAL AREA
     Route: 037
     Dates: start: 20130820, end: 20131010

REACTIONS (1)
  - Completed suicide [None]
